FAERS Safety Report 20517685 (Version 1)
Quarter: 2022Q1

REPORT INFORMATION
  Report Type: Spontaneous
  Country: US (occurrence: None)
  Receive Date: 20220224
  Receipt Date: 20220224
  Transmission Date: 20220423
  Serious: No
  Sender: FDA-Public Use
  Company Number: None

PATIENT
  Age: 64 Year
  Sex: Male
  Weight: 113 kg

DRUGS (1)
  1. SOTROVIMAB [Suspect]
     Active Substance: SOTROVIMAB
     Indication: COVID-19
     Route: 042
     Dates: start: 20220110, end: 20220110

REACTIONS (2)
  - Pruritus [None]
  - Urticaria [None]

NARRATIVE: CASE EVENT DATE: 20220111
